FAERS Safety Report 22111044 (Version 1)
Quarter: 2023Q1

REPORT INFORMATION
  Report Type: Spontaneous
  Country: ES (occurrence: None)
  Receive Date: 20230317
  Receipt Date: 20230317
  Transmission Date: 20230418
  Serious: Yes (Other)
  Sender: FDA-Public Use
  Company Number: 2023A061361

PATIENT
  Age: 71 Year
  Sex: Male

DRUGS (15)
  1. OSIMERTINIB [Interacting]
     Active Substance: OSIMERTINIB
     Indication: Non-small cell lung cancer metastatic
     Route: 048
     Dates: start: 202201
  2. OSIMERTINIB [Interacting]
     Active Substance: OSIMERTINIB
     Indication: EGFR gene mutation
     Route: 048
     Dates: start: 202201
  3. OSIMERTINIB [Interacting]
     Active Substance: OSIMERTINIB
     Indication: Non-small cell lung cancer metastatic
     Dosage: 160MG/24H
     Route: 048
     Dates: start: 202206, end: 202208
  4. OSIMERTINIB [Interacting]
     Active Substance: OSIMERTINIB
     Indication: EGFR gene mutation
     Dosage: 160MG/24H
     Route: 048
     Dates: start: 202206, end: 202208
  5. OSIMERTINIB [Interacting]
     Active Substance: OSIMERTINIB
     Indication: Non-small cell lung cancer metastatic
     Route: 048
     Dates: start: 202208
  6. OSIMERTINIB [Interacting]
     Active Substance: OSIMERTINIB
     Indication: EGFR gene mutation
     Route: 048
     Dates: start: 202208
  7. RIFAMPIN [Interacting]
     Active Substance: RIFAMPIN
     Route: 048
  8. ACETAMINOPHEN\TRAMADOL [Concomitant]
     Active Substance: ACETAMINOPHEN\TRAMADOL
     Dosage: 37.5/325MG/8H
  9. METAMIZOLE [Concomitant]
     Active Substance: METAMIZOLE
     Dosage: 575MG/8H
  10. DIAZEPAM [Concomitant]
     Active Substance: DIAZEPAM
     Dosage: 5MG/24H,
  11. LORAZEPAM [Concomitant]
     Active Substance: LORAZEPAM
     Dosage: 5MG/24H
  12. LORAZEPAM [Concomitant]
     Active Substance: LORAZEPAM
  13. PREGABALIN [Concomitant]
     Active Substance: PREGABALIN
     Dosage: 75MG/24H
  14. SIMVASTATIN [Concomitant]
     Active Substance: SIMVASTATIN
     Dosage: 10MG/24H
  15. DULOXETINE [Concomitant]
     Active Substance: DULOXETINE
     Dosage: 60MG/24H.

REACTIONS (4)
  - Malignant neoplasm progression [Unknown]
  - Drug interaction [Unknown]
  - Asthenia [Unknown]
  - Insomnia [Unknown]
